FAERS Safety Report 11723199 (Version 2)
Quarter: 2015Q4

REPORT INFORMATION
  Report Type: Spontaneous
  Country: JP (occurrence: JP)
  Receive Date: 20151111
  Receipt Date: 20151130
  Transmission Date: 20160304
  Serious: Yes (Hospitalization)
  Sender: FDA-Public Use
  Company Number: JP-ELI_LILLY_AND_COMPANY-JP201511001776

PATIENT
  Age: 67 Year
  Sex: Male

DRUGS (1)
  1. HUMALOG MIX50/50 [Suspect]
     Active Substance: INSULIN LISPRO
     Route: 058

REACTIONS (4)
  - Anti-insulin antibody positive [Unknown]
  - Urticaria physical [Unknown]
  - Drug hypersensitivity [Unknown]
  - Diabetes mellitus inadequate control [Recovered/Resolved]
